FAERS Safety Report 16782954 (Version 12)
Quarter: 2023Q2

REPORT INFORMATION
  Report Type: Report from Study
  Country: US (occurrence: US)
  Receive Date: 20190906
  Receipt Date: 20230620
  Transmission Date: 20230721
  Serious: Yes (Other)
  Sender: FDA-Public Use
  Company Number: US-AKCEA THERAPEUTICS-2019IS001687

PATIENT

DRUGS (5)
  1. TEGSEDI [Suspect]
     Active Substance: INOTERSEN SODIUM
     Indication: Hereditary neuropathic amyloidosis
     Dosage: 284 MILLIGRAM, QW
     Route: 058
     Dates: start: 20210114, end: 20230107
  2. TEGSEDI [Suspect]
     Active Substance: INOTERSEN SODIUM
     Dosage: 284 MILLIGRAM, QW
     Route: 058
     Dates: start: 20190803
  3. TEGSEDI [Suspect]
     Active Substance: INOTERSEN SODIUM
     Dosage: 284 MILLIGRAM/1.5 ML, QW
     Route: 058
     Dates: start: 20190625, end: 20230107
  4. TEGSEDI [Suspect]
     Active Substance: INOTERSEN SODIUM
     Dosage: 284 MILLIGRAM/1.5 ML, QW
     Route: 058
     Dates: start: 2013, end: 20190625
  5. TEGSEDI [Suspect]
     Active Substance: INOTERSEN SODIUM
     Dosage: 284 MILLIGRAM, QW
     Route: 058
     Dates: start: 20190203

REACTIONS (25)
  - Urine protein/creatinine ratio increased [Not Recovered/Not Resolved]
  - Renal function test abnormal [Unknown]
  - Pyuria [Recovering/Resolving]
  - Urine analysis abnormal [Unknown]
  - Protein urine present [Not Recovered/Not Resolved]
  - Creatinine urine decreased [Not Recovered/Not Resolved]
  - Diarrhoea [Not Recovered/Not Resolved]
  - Urinary tract infection [Not Recovered/Not Resolved]
  - Aspartate aminotransferase increased [Recovered/Resolved]
  - Alanine aminotransferase increased [Recovered/Resolved]
  - Urine leukocyte esterase positive [Not Recovered/Not Resolved]
  - White blood cells urine positive [Not Recovered/Not Resolved]
  - Urinary casts [Unknown]
  - Red blood cells urine positive [Unknown]
  - Bacterial test positive [Unknown]
  - Blood creatinine decreased [Unknown]
  - Glucose urine present [Unknown]
  - Urine abnormality [Unknown]
  - Crystal urine present [Unknown]
  - Occult blood positive [Unknown]
  - Nitrite urine present [Unknown]
  - Disease progression [Unknown]
  - Carpal tunnel syndrome [Unknown]
  - Tooth extraction [Unknown]
  - Macular degeneration [Unknown]

NARRATIVE: CASE EVENT DATE: 20130101
